FAERS Safety Report 16129817 (Version 1)
Quarter: 2019Q1

REPORT INFORMATION
  Report Type: Spontaneous
  Country: US (occurrence: US)
  Receive Date: 20190328
  Receipt Date: 20190328
  Transmission Date: 20190418
  Serious: No
  Sender: FDA-Public Use
  Company Number: US-SEBELA IRELAND LIMITED-2018SEB00177

PATIENT
  Sex: Female

DRUGS (2)
  1. NAFTIN [Suspect]
     Active Substance: NAFTIFINE HYDROCHLORIDE
     Indication: BLISTER
     Dosage: UNK, 1X/DAY
     Route: 061
     Dates: start: 2018
  2. NAFTIN [Suspect]
     Active Substance: NAFTIFINE HYDROCHLORIDE
     Indication: FUNGAL SKIN INFECTION
     Dosage: UNK, 1X/DAY
     Route: 061
     Dates: start: 201804, end: 2018

REACTIONS (3)
  - Acne [Recovering/Resolving]
  - Blister [Recovering/Resolving]
  - Drug effect incomplete [Not Recovered/Not Resolved]

NARRATIVE: CASE EVENT DATE: 2018
